FAERS Safety Report 14910306 (Version 1)
Quarter: 2018Q2

REPORT INFORMATION
  Report Type: Spontaneous
  Country: US (occurrence: US)
  Receive Date: 20180430
  Receipt Date: 20180430
  Transmission Date: 20180711
  Serious: Yes (Death)
  Sender: FDA-Public Use
  Company Number: None

PATIENT
  Age: 64 Year
  Sex: Male
  Weight: 121.2 kg

DRUGS (2)
  1. AZACITIDINE. [Suspect]
     Active Substance: AZACITIDINE
  2. PEMBROLIZUMAB. [Suspect]
     Active Substance: PEMBROLIZUMAB

REACTIONS (9)
  - Weight increased [None]
  - Acute kidney injury [None]
  - Febrile neutropenia [None]
  - Fatigue [None]
  - Atrial fibrillation [None]
  - Fluid overload [None]
  - Gastrointestinal haemorrhage [None]
  - Tachycardia [None]
  - Cardiac failure [None]

NARRATIVE: CASE EVENT DATE: 20180428
